FAERS Safety Report 5846887-7 (Version None)
Quarter: 2008Q3

REPORT INFORMATION
  Report Type: 
  Country: None (occurrence: None)
  Receive Date: 20080815
  Receipt Date: 20080808
  Transmission Date: 20090109
  Serious: Yes (Hospitalization)
  Sender: FDA-Public Use
  Company Number: GB-PURDUE-USA_2008_0034373

PATIENT
  Age: 32 Year
  Sex: Female

DRUGS (5)
  1. MORPHINE SULFATE [Suspect]
     Indication: PAIN
     Dosage: 10 MG, UNK
     Route: 048
  2. DOTHIEPIN [Concomitant]
     Indication: PAIN
  3. PARACETAMOL/DIHYDROCODEINE [Concomitant]
     Indication: PAIN
  4. IBUPROFEN [Concomitant]
     Indication: PAIN
  5. TRAMADOL HCL [Concomitant]
     Indication: PAIN

REACTIONS (1)
  - PAIN [None]
